FAERS Safety Report 7394752-9 (Version None)
Quarter: 2011Q2

REPORT INFORMATION
  Report Type: 
  Country: None (occurrence: None)
  Receive Date: 20110405
  Receipt Date: 20110325
  Transmission Date: 20111010
  Serious: Yes (Death, Other)
  Sender: FDA-Public Use
  Company Number: US-BAXTER-2011BH008366

PATIENT

DRUGS (6)
  1. PACLITAXEL [Suspect]
     Indication: GERM CELL CANCER
     Route: 065
  2. ETOPOSIDE [Suspect]
     Indication: GERM CELL CANCER
     Route: 065
  3. CARBOPLATIN [Suspect]
     Indication: GERM CELL CANCER
     Route: 065
  4. CISPLATIN [Suspect]
     Indication: GERM CELL CANCER
     Route: 065
  5. IFOSFAMIDE [Suspect]
     Indication: GERM CELL CANCER
     Route: 065
  6. MESNA [Concomitant]
     Indication: PROPHYLAXIS
     Route: 065

REACTIONS (2)
  - CEREBRAL HAEMORRHAGE [None]
  - NEUTROPENIA [None]
